FAERS Safety Report 8884832 (Version 1)
Quarter: 2012Q4

REPORT INFORMATION
  Report Type: 
  Country: US (occurrence: US)
  Receive Date: 20121105
  Receipt Date: 20121105
  Transmission Date: 20130627
  Serious: Yes (Other)
  Sender: FDA-Public Use
  Company Number: US-BRISTOL-MYERS SQUIBB COMPANY-16949364

PATIENT
  Age: 51 Year
  Sex: Female
  Weight: 79 kg

DRUGS (1)
  1. ABATACEPT SUBQ INJECTION 125MG/ML [Suspect]
     Indication: RHEUMATOID ARTHRITIS
     Dosage: Last inj: 06Sep12,21Sep12
lot #:1A71599
     Route: 058
     Dates: start: 201205

REACTIONS (3)
  - Pathological fracture [Unknown]
  - Contusion [Recovered/Resolved]
  - Drug ineffective [Unknown]
